FAERS Safety Report 22591375 (Version 7)
Quarter: 2023Q4

REPORT INFORMATION
  Report Type: Spontaneous
  Country: US (occurrence: US)
  Receive Date: 20230612
  Receipt Date: 20231113
  Transmission Date: 20240109
  Serious: Yes (Death, Hospitalization)
  Sender: FDA-Public Use
  Company Number: US-KARYOPHARM-2023KPT001398

PATIENT

DRUGS (3)
  1. XPOVIO [Suspect]
     Active Substance: SELINEXOR
     Indication: Plasma cell myeloma
     Dosage: 60 MG, WEEKLY
     Route: 048
     Dates: start: 20230420, end: 2023
  2. XPOVIO [Suspect]
     Active Substance: SELINEXOR
     Dosage: 60 MG, WEEKLY FOR 3 WEEKS AND 1 WEEK OFF
     Route: 048
     Dates: start: 2023, end: 2023
  3. XPOVIO [Suspect]
     Active Substance: SELINEXOR
     Dosage: 60 MG, WEEKLY FOR 3 WEEKS AND 1 WEEK OFF
     Route: 048
     Dates: start: 20230809, end: 202309

REACTIONS (11)
  - Death [Fatal]
  - COVID-19 [Recovering/Resolving]
  - Infection [Recovering/Resolving]
  - Ill-defined disorder [Unknown]
  - Platelet count increased [Unknown]
  - Eye swelling [Unknown]
  - Balance disorder [Unknown]
  - Dialysis [Unknown]
  - Diarrhoea [Not Recovered/Not Resolved]
  - Nausea [Not Recovered/Not Resolved]
  - Product dose omission issue [Unknown]

NARRATIVE: CASE EVENT DATE: 20230101
